FAERS Safety Report 5088340-7 (Version None)
Quarter: 2006Q3

REPORT INFORMATION
  Report Type: 
  Country: None (occurrence: None)
  Receive Date: 20060821
  Receipt Date: 20060811
  Transmission Date: 20061208
  Serious: Yes (Life-Threatening, Hospitalization)
  Sender: FDA-Public Use
  Company Number: 2006-146462-NL

PATIENT
  Age: 75 Year
  Sex: Female
  Weight: 80.9 kg

DRUGS (4)
  1. ZEMURON [Suspect]
     Indication: NEUROMUSCULAR BLOCKADE
     Dosage: 20 MG ONCE INTRAVENOUS (NOS)
     Route: 042
     Dates: start: 20060731, end: 20060731
  2. ZEMURON [Suspect]
     Indication: NEUROMUSCULAR BLOCKADE
     Dosage: 20 MG ONCE INTRAVENOUS (NOS)
     Route: 048
     Dates: start: 20060731, end: 20060731
  3. ZEMURON [Suspect]
     Indication: NEUROMUSCULAR BLOCKADE
     Dosage: 10 MG ONCE INTRAVENOUS (NOS)
     Route: 042
     Dates: start: 20060731, end: 20060731
  4. ARICEPT [Concomitant]

REACTIONS (7)
  - ASTHENIA [None]
  - BLOOD PRESSURE INCREASED [None]
  - DYSPNOEA [None]
  - ELECTROCARDIOGRAM QT PROLONGED [None]
  - ELECTROCARDIOGRAM ST SEGMENT DEPRESSION [None]
  - HEART RATE INCREASED [None]
  - MUSCULAR WEAKNESS [None]
